FAERS Safety Report 8979345 (Version 1)
Quarter: 2012Q4

REPORT INFORMATION
  Report Type: 
  Country: US (occurrence: US)
  Receive Date: 20121221
  Receipt Date: 20121221
  Transmission Date: 20130627
  Serious: Yes (Life-Threatening, Hospitalization)
  Sender: FDA-Public Use
  Company Number: US-MYLANLABS-2012S1025467

PATIENT
  Age: 22 Year
  Sex: Male

DRUGS (7)
  1. XANAX [Suspect]
     Indication: OVERDOSE
     Dosage: 54 tablets of 0.5mg; obtained from the street
     Route: 065
  2. ALPRAZOLAM [Interacting]
     Dosage: Obtained from the street
     Route: 065
  3. METHADONE [Interacting]
     Indication: DRUG WITHDRAWAL MAINTENANCE THERAPY
     Route: 065
  4. CLONAZEPAM [Suspect]
     Indication: DRUG ABUSE
     Route: 065
  5. LORAZEPAM [Suspect]
     Indication: DRUG ABUSE
     Route: 065
  6. ZOLOFT [Concomitant]
     Indication: ANXIETY DISORDER
     Route: 065
  7. ZOLOFT [Concomitant]
     Indication: MAJOR DEPRESSION
     Route: 065

REACTIONS (8)
  - Overdose [Recovered/Resolved]
  - Encephalopathy [Recovered/Resolved]
  - Bradycardia [Recovered/Resolved]
  - Hypotension [Recovered/Resolved]
  - Loss of consciousness [Recovered/Resolved]
  - Dyspnoea [Recovered/Resolved]
  - Drug interaction [Recovered/Resolved]
  - Drug abuse [Unknown]
